FAERS Safety Report 9614833 (Version 2)
Quarter: 2013Q4

REPORT INFORMATION
  Report Type: Spontaneous
  Country: US (occurrence: US)
  Receive Date: 20131011
  Receipt Date: 20131113
  Transmission Date: 20140711
  Serious: No
  Sender: FDA-Public Use
  Company Number: US-PFIZER INC-2013288118

PATIENT
  Age: 64 Year
  Sex: Female

DRUGS (2)
  1. ESTRING [Suspect]
     Dosage: UNK, EVERY 3 MONTHS
     Route: 067
     Dates: start: 20070821, end: 20131007
  2. ARMOUR THYROID [Concomitant]
     Indication: THYROID DISORDER
     Dosage: 60 MG, 1X/DAY

REACTIONS (2)
  - Product quality issue [Unknown]
  - Vaginal discharge [Unknown]
